FAERS Safety Report 25625390 (Version 1)
Quarter: 2025Q3

REPORT INFORMATION
  Report Type: Spontaneous
  Country: EU (occurrence: EU)
  Receive Date: 20250731
  Receipt Date: 20250731
  Transmission Date: 20251021
  Serious: Yes (Other)
  Sender: CELLTRION
  Company Number: None

PATIENT

DRUGS (1)
  1. YUFLYMA [Suspect]
     Active Substance: ADALIMUMAB-AATY
     Indication: Spinal osteoarthritis
     Dates: start: 20250219, end: 20250428

REACTIONS (6)
  - Balance disorder [Recovering/Resolving]
  - Nervous system disorder [Recovering/Resolving]
  - Arthralgia [Recovering/Resolving]
  - Dizziness [Recovering/Resolving]
  - Headache [Recovering/Resolving]
  - Intentional product use issue [Unknown]

NARRATIVE: CASE EVENT DATE: 20250219
